FAERS Safety Report 12558619 (Version 1)
Quarter: 2016Q3

REPORT INFORMATION
  Report Type: Spontaneous
  Country: US (occurrence: US)
  Receive Date: 20160715
  Receipt Date: 20160715
  Transmission Date: 20161109
  Serious: Yes (Hospitalization, Other)
  Sender: FDA-Public Use
  Company Number: US-BRISTOL-MYERS SQUIBB COMPANY-BMS-2016-057715

PATIENT

DRUGS (1)
  1. NULOJIX [Suspect]
     Active Substance: BELATACEPT
     Indication: RENAL TRANSPLANT
     Dosage: UNK
     Route: 065
     Dates: end: 20130930

REACTIONS (4)
  - Cerebrovascular accident [Unknown]
  - Acute respiratory failure [Unknown]
  - Troponin increased [Unknown]
  - Gastrointestinal haemorrhage [Unknown]
